FAERS Safety Report 9137518 (Version 1)
Quarter: 2013Q1

REPORT INFORMATION
  Report Type: Spontaneous
  Country: US (occurrence: US)
  Receive Date: 20130304
  Receipt Date: 20130304
  Transmission Date: 20140127
  Serious: Yes (Disabling, Other)
  Sender: FDA-Public Use
  Company Number: PHEH2013US002437

PATIENT
  Age: 76 Year
  Sex: Female

DRUGS (3)
  1. RECLAST [Suspect]
     Indication: OSTEOPOROSIS
     Dosage: 5 MG, UNK
     Route: 042
     Dates: start: 20121128
  2. PREDNISONE [Concomitant]
     Indication: NEUROPATHY PERIPHERAL
     Dosage: 10 MG, QD
     Route: 048
  3. METHOTREXATE [Concomitant]
     Indication: NEUROPATHY PERIPHERAL
     Dosage: 10 MG, WEEKLY
     Route: 048
     Dates: start: 20120720, end: 20130108

REACTIONS (12)
  - Hypoaesthesia [Unknown]
  - Pain in extremity [Recovering/Resolving]
  - Throat tightness [Unknown]
  - Stomatitis [Recovered/Resolved]
  - Burning sensation [Recovering/Resolving]
  - Swelling face [Unknown]
  - Diarrhoea [Recovered/Resolved]
  - Headache [Unknown]
  - Fatigue [Unknown]
  - Chills [Unknown]
  - Pain [Unknown]
  - Crying [Unknown]
